FAERS Safety Report 7041498-2 (Version None)
Quarter: 2010Q4

REPORT INFORMATION
  Report Type: 
  Country: None (occurrence: None)
  Receive Date: 20101013
  Receipt Date: 20100317
  Transmission Date: 20110411
  Serious: No
  Sender: FDA-Public Use
  Company Number: US-ASTRAZENECA-2010SE04391

PATIENT
  Age: 83 Year
  Sex: Female

DRUGS (3)
  1. SYMBICORT [Suspect]
     Indication: CHRONIC OBSTRUCTIVE PULMONARY DISEASE
     Dosage: 640 MCG
     Route: 055
  2. THYROID [Concomitant]
  3. LIPITOR [Concomitant]

REACTIONS (2)
  - DEVICE FAILURE [None]
  - DRUG INEFFECTIVE [None]
